FAERS Safety Report 6604683-7 (Version None)
Quarter: 2010Q1

REPORT INFORMATION
  Report Type: 
  Country: None (occurrence: None)
  Receive Date: 20100226
  Receipt Date: 20100219
  Transmission Date: 20100710
  Serious: Yes (Other)
  Sender: FDA-Public Use
  Company Number: ES-ROCHE-685758

PATIENT
  Sex: Female
  Weight: 65.4 kg

DRUGS (2)
  1. AVASTIN [Suspect]
     Route: 042
     Dates: start: 20090703, end: 20091217
  2. TAXOTERE [Concomitant]
     Route: 042
     Dates: start: 20090703, end: 20091217

REACTIONS (6)
  - COUGH [None]
  - DYSPNOEA [None]
  - FISTULA [None]
  - HYPOXIA [None]
  - PLEURAL DISORDER [None]
  - PNEUMOTHORAX [None]
